FAERS Safety Report 19079218 (Version 8)
Quarter: 2022Q1

REPORT INFORMATION
  Report Type: Spontaneous
  Country: US (occurrence: US)
  Receive Date: 20210331
  Receipt Date: 20220309
  Transmission Date: 20220423
  Serious: No
  Sender: FDA-Public Use
  Company Number: US-PFIZER INC-2021314171

PATIENT
  Age: 54 Year
  Sex: Female
  Weight: 95.24 kg

DRUGS (2)
  1. INFLECTRA [Suspect]
     Active Substance: INFLIXIMAB-DYYB
     Indication: Rheumatoid arthritis
     Dosage: UNK, EVERY 8 WEEKS
     Dates: start: 202101
  2. METHOTREXATE SODIUM [Suspect]
     Active Substance: METHOTREXATE SODIUM
     Dosage: UNK (TAKES METHOTREXATE AND HAS FOR ABOUT 15 YEARS)

REACTIONS (2)
  - Drug effect less than expected [Unknown]
  - Pain [Unknown]

NARRATIVE: CASE EVENT DATE: 20210101
